FAERS Safety Report 6470283-5 (Version None)
Quarter: 2009Q4

REPORT INFORMATION
  Report Type: 
  Country: None (occurrence: None)
  Receive Date: 20091203
  Receipt Date: 20091124
  Transmission Date: 20100525
  Serious: Yes (Other)
  Sender: FDA-Public Use
  Company Number: CHPA2009US21691

PATIENT
  Age: 23 Year
  Sex: Female
  Weight: 58.957 kg

DRUGS (1)
  1. EXCEDRIN MIGRAINE (NCH) [Suspect]
     Indication: MIGRAINE
     Dosage: 2 DF, QD
     Route: 048
     Dates: start: 20091108, end: 20091108

REACTIONS (4)
  - HEART RATE INCREASED [None]
  - HYPOAESTHESIA [None]
  - MALAISE [None]
  - TREMOR [None]
